FAERS Safety Report 20065923 (Version 1)
Quarter: 2021Q4

REPORT INFORMATION
  Report Type: Spontaneous
  Country: HU (occurrence: HU)
  Receive Date: 20211114
  Receipt Date: 20211114
  Transmission Date: 20220303
  Serious: Yes (Other)
  Sender: FDA-Public Use
  Company Number: HU-JNJFOC-20210517716

PATIENT
  Age: 29 Year
  Sex: Female
  Weight: 57 kg

DRUGS (5)
  1. VELETRI [Suspect]
     Active Substance: EPOPROSTENOL
     Indication: Pulmonary hypertension
     Route: 042
  2. SILDENAFIL [Concomitant]
     Active Substance: SILDENAFIL
  3. MACITENTAN [Concomitant]
     Active Substance: MACITENTAN
  4. SELEXIPAG [Concomitant]
     Active Substance: SELEXIPAG
  5. DILTIAZEM [Concomitant]
     Active Substance: DILTIAZEM

REACTIONS (3)
  - Loss of consciousness [Unknown]
  - Exposure during pregnancy [Recovered/Resolved]
  - COVID-19 [Unknown]

NARRATIVE: CASE EVENT DATE: 20210401
